FAERS Safety Report 9014521 (Version 1)
Quarter: 2013Q1

REPORT INFORMATION
  Report Type: Report from Study
  Country: CA (occurrence: CA)
  Receive Date: 20130115
  Receipt Date: 20130115
  Transmission Date: 20140127
  Serious: Yes (Other)
  Sender: FDA-Public Use
  Company Number: CA-JNJFOC-20130104167

PATIENT
  Sex: Male
  Weight: 71.6 kg

DRUGS (2)
  1. REMICADE [Suspect]
     Indication: CROHN^S DISEASE
     Route: 042
     Dates: start: 2006
  2. REMICADE [Suspect]
     Indication: ANKYLOSING SPONDYLITIS
     Route: 042
     Dates: start: 2006

REACTIONS (4)
  - Abscess [Recovered/Resolved]
  - Psoriasis [Recovered/Resolved]
  - Fistula [Recovered/Resolved]
  - Drug effect decreased [Not Recovered/Not Resolved]
